FAERS Safety Report 5691973-8 (Version None)
Quarter: 2008Q2

REPORT INFORMATION
  Report Type: 
  Country: None (occurrence: None)
  Receive Date: 20080402
  Receipt Date: 20080326
  Transmission Date: 20081010
  Serious: Yes (Other)
  Sender: FDA-Public Use
  Company Number: FR-JNJFOC-20080305747

PATIENT
  Age: 83 Year
  Sex: Female

DRUGS (2)
  1. GALANTAMINE HYDROBROMIDE [Suspect]
     Dosage: FOR 3 OR 4 MONTHS
     Route: 048
  2. GALANTAMINE HYDROBROMIDE [Suspect]
     Indication: DRUG USE FOR UNKNOWN INDICATION
     Dosage: APPROXIMATELY ONE YEAR AGO
     Route: 048

REACTIONS (1)
  - HEPATOTOXICITY [None]
